FAERS Safety Report 5597954-7 (Version None)
Quarter: 2008Q1

REPORT INFORMATION
  Report Type: 
  Country: None (occurrence: None)
  Receive Date: 20080122
  Receipt Date: 20080117
  Transmission Date: 20080703
  Serious: Yes (Other)
  Sender: FDA-Public Use
  Company Number: US-BAYER-US-2007-009787

PATIENT
  Age: 43 Year
  Sex: Male

DRUGS (2)
  1. BETASERON [Suspect]
     Indication: MULTIPLE SCLEROSIS
     Route: 058
     Dates: start: 20041015, end: 20060720
  2. BETASERON [Suspect]
     Route: 058
     Dates: start: 20061004, end: 20061201

REACTIONS (1)
  - CEREBRAL SARCOIDOSIS [None]
